FAERS Safety Report 20995374 (Version 1)
Quarter: 2022Q2

REPORT INFORMATION
  Report Type: Spontaneous
  Country: US (occurrence: US)
  Receive Date: 20220622
  Receipt Date: 20220622
  Transmission Date: 20220720
  Serious: No
  Sender: FDA-Public Use
  Company Number: US-CTI BIOPHARMA-2022US02815

PATIENT
  Age: 73 Year
  Sex: Male

DRUGS (1)
  1. VONJO [Suspect]
     Active Substance: PACRITINIB
     Indication: Thrombocytopenia
     Dosage: 200 MILLIGRAM, BID
     Dates: start: 20220419

REACTIONS (1)
  - Anaemia [Unknown]
